FAERS Safety Report 7040099-X (Version None)
Quarter: 2010Q4

REPORT INFORMATION
  Report Type: 
  Country: None (occurrence: None)
  Receive Date: 20101012
  Receipt Date: 20100929
  Transmission Date: 20110411
  Serious: Yes (Disabling, Other)
  Sender: FDA-Public Use
  Company Number: PHHY2010US64730

PATIENT
  Sex: Female

DRUGS (7)
  1. ZOMETA [Suspect]
  2. REVLIMID [Suspect]
     Indication: MULTIPLE MYELOMA
     Dosage: 5 MG, QD
     Route: 048
     Dates: start: 20060309, end: 20080101
  3. REVLIMID [Suspect]
     Dosage: 5 MG, BID
     Route: 048
     Dates: start: 20080701
  4. REVLIMID [Suspect]
     Dosage: 5 MG, BID
     Route: 048
     Dates: start: 20081101
  5. DECADRON [Concomitant]
     Indication: MULTIPLE MYELOMA
     Dosage: 40 MG, QW
     Route: 048
     Dates: start: 20070101
  6. VITAMIN B-12 [Concomitant]
     Indication: VITAMIN B12 DEFICIENCY
     Dosage: 1000 UG MONTHLY
     Route: 058
     Dates: start: 20090401
  7. CHEMOTHERAPEUTICS NOS [Concomitant]

REACTIONS (6)
  - BONE ABSCESS [None]
  - DENTAL CARIES [None]
  - GINGIVAL INFECTION [None]
  - OSTEONECROSIS OF JAW [None]
  - TOOTH ABSCESS [None]
  - TOOTH EXTRACTION [None]
